FAERS Safety Report 18513323 (Version 1)
Quarter: 2020Q4

REPORT INFORMATION
  Report Type: Spontaneous
  Country: US (occurrence: US)
  Receive Date: 20201118
  Receipt Date: 20201118
  Transmission Date: 20210114
  Serious: Yes (Hospitalization)
  Sender: FDA-Public Use
  Company Number: US-ROCHE-2714375

PATIENT
  Age: 64 Year
  Sex: Male

DRUGS (11)
  1. PRILOSEC [Concomitant]
     Active Substance: OMEPRAZOLE MAGNESIUM
  2. METHOTREXATE. [Concomitant]
     Active Substance: METHOTREXATE
  3. DULOXETINE. [Concomitant]
     Active Substance: DULOXETINE
  4. ACTEMRA [Suspect]
     Active Substance: TOCILIZUMAB
     Indication: RHEUMATOID ARTHRITIS
     Dosage: 162 MG/0.9 ML SRIYNGE
     Route: 058
     Dates: start: 20200921
  5. TAMSULOSIN [Concomitant]
     Active Substance: TAMSULOSIN
  6. PLAQUENIL [Concomitant]
     Active Substance: HYDROXYCHLOROQUINE SULFATE
  7. FLOMAX [Concomitant]
     Active Substance: TAMSULOSIN HYDROCHLORIDE
  8. WELLBUTRIN [Concomitant]
     Active Substance: BUPROPION HYDROCHLORIDE
  9. WELCHOL [Concomitant]
     Active Substance: COLESEVELAM HYDROCHLORIDE
  10. VITAMIN D3 [Concomitant]
     Active Substance: CHOLECALCIFEROL
  11. VENTOLIN HFA [Concomitant]
     Active Substance: ALBUTEROL SULFATE
     Dosage: AEROSOL

REACTIONS (2)
  - Chest discomfort [Unknown]
  - Stress [Unknown]

NARRATIVE: CASE EVENT DATE: 20201110
